FAERS Safety Report 6035489-8 (Version None)
Quarter: 2009Q1

REPORT INFORMATION
  Report Type: 
  Country: None (occurrence: None)
  Receive Date: 20090112
  Receipt Date: 20090112
  Transmission Date: 20090719
  Serious: Yes (Hospitalization)
  Sender: FDA-Public Use
  Company Number: None

PATIENT
  Age: 78 Year
  Sex: Male

DRUGS (12)
  1. VANCOMYCIN [Suspect]
     Indication: STAPHYLOCOCCAL BACTERAEMIA
     Dosage: 1GM DAILY-TWICE DAILY IV
     Route: 042
     Dates: start: 20080924, end: 20081031
  2. HYDRALAZINE HCL [Concomitant]
  3. ATROVENT [Concomitant]
  4. ALBUTEROL [Concomitant]
  5. SIMVASTATIN [Concomitant]
  6. INSULIN [Concomitant]
  7. PLAVIX [Concomitant]
  8. ASPIRIN [Concomitant]
  9. NOREPINEPHRINE [Concomitant]
  10. ESOMEPRAZOLE [Concomitant]
  11. EPOGEN [Concomitant]
  12. CLONIDINE HCL [Concomitant]

REACTIONS (9)
  - ANAEMIA [None]
  - BACTERAEMIA [None]
  - ENDOCARDITIS STAPHYLOCOCCAL [None]
  - HYPERVOLAEMIA [None]
  - PETECHIAE [None]
  - PULMONARY OEDEMA [None]
  - PURPURA [None]
  - RASH ERYTHEMATOUS [None]
  - RENAL FAILURE [None]
